FAERS Safety Report 25047799 (Version 2)
Quarter: 2025Q2

REPORT INFORMATION
  Report Type: Spontaneous
  Country: ES (occurrence: ES)
  Receive Date: 20250306
  Receipt Date: 20250508
  Transmission Date: 20250716
  Serious: Yes (Hospitalization, Other)
  Sender: TAIHO ONCOLOGY INC
  Company Number: ES-MMM-Otsuka-HES6R1MK

PATIENT
  Sex: Male

DRUGS (1)
  1. INQOVI [Suspect]
     Active Substance: CEDAZURIDINE\DECITABINE
     Indication: Chloroma
     Dosage: 1 DF, DAILY (PER DAY) FOR 5 DAYS?FILM COATED TABLET
     Route: 048
     Dates: start: 20241218

REACTIONS (3)
  - Congenital aplasia [Recovering/Resolving]
  - Febrile neutropenia [Unknown]
  - Off label use [Unknown]

NARRATIVE: CASE EVENT DATE: 20241218
